FAERS Safety Report 7645784-4 (Version None)
Quarter: 2011Q3

REPORT INFORMATION
  Report Type: 
  Country: None (occurrence: None)
  Receive Date: 20110729
  Receipt Date: 20110720
  Transmission Date: 20111222
  Serious: Yes (Hospitalization)
  Sender: FDA-Public Use
  Company Number: US-ASTRAZENECA-2011SE43745

PATIENT
  Age: 26 Year
  Sex: Male
  Weight: 59 kg

DRUGS (2)
  1. SEROQUEL [Suspect]
     Route: 048
  2. HALDOL [Concomitant]

REACTIONS (3)
  - SUICIDAL IDEATION [None]
  - ABNORMAL BEHAVIOUR [None]
  - AGITATION [None]
